FAERS Safety Report 11620100 (Version 2)
Quarter: 2015Q4

REPORT INFORMATION
  Report Type: Spontaneous
  Country: US (occurrence: US)
  Receive Date: 20151012
  Receipt Date: 20151015
  Transmission Date: 20160304
  Serious: No
  Sender: FDA-Public Use
  Company Number: US-SA-2015SA088375

PATIENT
  Age: 34 Year
  Sex: Male

DRUGS (1)
  1. AFREZZA [Suspect]
     Active Substance: INSULIN HUMAN
     Indication: TYPE 1 DIABETES MELLITUS
     Dosage: DOSE: 3-4 UNITS?FORM: POWDER
     Route: 065
     Dates: start: 20150611, end: 20150619

REACTIONS (1)
  - Blood glucose increased [Unknown]
